FAERS Safety Report 9768990 (Version 2)
Quarter: 2013Q4

REPORT INFORMATION
  Report Type: Spontaneous
  Country: US (occurrence: None)
  Receive Date: 20130829
  Receipt Date: 20131004
  Transmission Date: 20140711
  Serious: Yes (Disabling, Other)
  Sender: FDA-Public Use
  Company Number: 1303-422

PATIENT
  Age: 83 Year
  Sex: Female

DRUGS (2)
  1. EYLEA (AFLIBERCEPT) (INJECTION) (AFLIBERCEPT) [Suspect]
     Indication: AGE-RELATED MACULAR DEGENERATION
     Dosage: INTRAVITREAL
  2. DUREZOL (DIFLUPREDNATE) [Concomitant]

REACTIONS (4)
  - Non-infectious endophthalmitis [None]
  - Blindness transient [None]
  - Vitreous floaters [None]
  - Anterior chamber cell [None]
